FAERS Safety Report 25034651 (Version 2)
Quarter: 2025Q2

REPORT INFORMATION
  Report Type: Report from Study
  Country: GB (occurrence: GB)
  Receive Date: 20250304
  Receipt Date: 20250523
  Transmission Date: 20250717
  Serious: Yes (Other)
  Sender: SANDOZ
  Company Number: GB-SANDOZ-SDZ2024GB006309

PATIENT
  Sex: Female

DRUGS (1)
  1. OMNITROPE [Suspect]
     Active Substance: SOMATROPIN
     Indication: Pituitary gonadotropin hyperfunction
     Dosage: 0.25 MG, QD
     Route: 058

REACTIONS (17)
  - Lower respiratory tract infection [Unknown]
  - Carpal tunnel syndrome [Not Recovered/Not Resolved]
  - Depression [Not Recovered/Not Resolved]
  - Fatigue [Unknown]
  - COVID-19 [Unknown]
  - Sciatica [Unknown]
  - Gait inability [Unknown]
  - Malaise [Unknown]
  - Device difficult to use [Unknown]
  - Product dose omission issue [Unknown]
  - Device use error [Unknown]
  - Product prescribing issue [Unknown]
  - Inappropriate schedule of product administration [Unknown]
  - Incorrect dose administered [Unknown]
  - Product availability issue [Unknown]
  - Product use issue [Unknown]
  - Product use in unapproved indication [Unknown]
